FAERS Safety Report 18500617 (Version 2)
Quarter: 2023Q2

REPORT INFORMATION
  Report Type: Report from Study
  Country: JP (occurrence: JP)
  Receive Date: 20201113
  Receipt Date: 20230614
  Transmission Date: 20230722
  Serious: Yes (Death, Hospitalization)
  Sender: FDA-Public Use
  Company Number: JP-EISAI-202006867_LEN-HCC_P_1

PATIENT
  Age: 52 Year
  Sex: Male
  Weight: 85 kg

DRUGS (15)
  1. LENVATINIB [Suspect]
     Active Substance: LENVATINIB
     Indication: Hepatocellular carcinoma
     Route: 048
     Dates: start: 20200819, end: 20200824
  2. LENVATINIB [Suspect]
     Active Substance: LENVATINIB
     Route: 048
     Dates: start: 20200828, end: 20200829
  3. LENVATINIB [Suspect]
     Active Substance: LENVATINIB
     Route: 048
     Dates: start: 20200905, end: 20200929
  4. NEXIUM [Concomitant]
     Active Substance: ESOMEPRAZOLE MAGNESIUM
     Indication: Prophylaxis
     Route: 048
     Dates: start: 20200822, end: 20200829
  5. VEMLIDY [Concomitant]
     Active Substance: TENOFOVIR ALAFENAMIDE FUMARATE
     Indication: Hepatitis B
     Route: 048
     Dates: start: 20200815, end: 20201025
  6. JANUVIA [Concomitant]
     Active Substance: SITAGLIPTIN PHOSPHATE
     Indication: Diabetes mellitus
     Route: 048
     Dates: start: 20200821, end: 20201025
  7. TAPENTADOL HYDROCHLORIDE [Concomitant]
     Active Substance: TAPENTADOL HYDROCHLORIDE
     Indication: Change of bowel habit
     Dates: start: 20200818, end: 20200928
  8. OXYCODONE [Concomitant]
     Active Substance: OXYCODONE
     Indication: Change of bowel habit
     Dates: start: 20200818, end: 20200928
  9. MAGNESIUM OXIDE [Concomitant]
     Active Substance: MAGNESIUM OXIDE
     Indication: Change of bowel habit
     Dates: start: 20200818, end: 20200928
  10. VONOPRAZAN FUMARATE [Concomitant]
     Active Substance: VONOPRAZAN FUMARATE
     Indication: Gastric mucosal lesion
     Dates: start: 20201005, end: 20201025
  11. ALLOID G [Concomitant]
     Active Substance: SODIUM ALGINATE
     Indication: Gastric mucosal lesion
     Dates: start: 20201005, end: 20201025
  12. GLA-ALPHA [Concomitant]
     Indication: Gastric mucosal lesion
     Dates: start: 20201005, end: 20201025
  13. SPIRONOLACTONE [Concomitant]
     Active Substance: SPIRONOLACTONE
     Indication: Ascites
     Route: 048
     Dates: start: 20201005, end: 20201025
  14. FUROSEMIDE [Concomitant]
     Active Substance: FUROSEMIDE
     Indication: Ascites
     Route: 048
     Dates: start: 20201015, end: 20201025
  15. SAMSCA [Concomitant]
     Active Substance: TOLVAPTAN
     Indication: Ascites
     Route: 048
     Dates: start: 20201008, end: 20201025

REACTIONS (2)
  - Death [Fatal]
  - Oesophageal varices haemorrhage [Recovered/Resolved]

NARRATIVE: CASE EVENT DATE: 20200829
